FAERS Safety Report 6252180-3 (Version None)
Quarter: 2009Q2

REPORT INFORMATION
  Report Type: 
  Country: None (occurrence: None)
  Receive Date: 20090629
  Receipt Date: 20090615
  Transmission Date: 20091009
  Serious: Yes (Other)
  Sender: FDA-Public Use
  Company Number: PAR_03034_2009

PATIENT
  Age: 24 Year
  Sex: Female

DRUGS (2)
  1. LEFLUNOMIDE [Suspect]
     Indication: ANKYLOSING SPONDYLITIS
     Dosage: 20 MG
     Dates: start: 20060101
  2. METHYLPREDNISOLONE [Concomitant]

REACTIONS (6)
  - CUTANEOUS LUPUS ERYTHEMATOSUS [None]
  - DYSPHAGIA [None]
  - ERYTHEMA MULTIFORME [None]
  - GASTROINTESTINAL DISORDER [None]
  - PHOTOPHOBIA [None]
  - VAGINAL EROSION [None]
